FAERS Safety Report 10769638 (Version 2)
Quarter: 2024Q4

REPORT INFORMATION
  Report Type: Report from Study
  Country: BE (occurrence: BE)
  Receive Date: 20150206
  Receipt Date: 20241213
  Transmission Date: 20250114
  Serious: Yes (Death)
  Sender: SANOFI AVENTIS
  Company Number: BE-SA-2015SA014311

PATIENT

DRUGS (5)
  1. CLOFARABINE [Suspect]
     Active Substance: CLOFARABINE
     Indication: Chemotherapy
     Dosage: 10 MG/M2,QD, ON DAYS 2, 4, 6, 8 AND 10, PUSH INJECTION (ARM B)
     Route: 040
  2. CYTARABINE [Suspect]
     Active Substance: CYTARABINE
     Indication: Chemotherapy
     Dosage: 100 MG/M2,QD, ON DAYS 1?10
  3. CYTARABINE [Suspect]
     Active Substance: CYTARABINE
     Dosage: 500 MG/M2,Q12H, ON DAYS 1-6
  4. IDARUBICIN [Suspect]
     Active Substance: IDARUBICIN
     Indication: Chemotherapy
     Dosage: 10 MG/M2,QD, ON DAYS 1, 3, AND 5
  5. IDARUBICIN [Suspect]
     Active Substance: IDARUBICIN
     Dosage: 10 MG/M2,QD, ON DAYS 4, 5 AND 6

REACTIONS (1)
  - Toxicity to various agents [Fatal]
